FAERS Safety Report 7814948-9 (Version None)
Quarter: 2011Q4

REPORT INFORMATION
  Report Type: 
  Country: None (occurrence: None)
  Receive Date: 20111014
  Receipt Date: 20111007
  Transmission Date: 20120403
  Serious: Yes (Hospitalization)
  Sender: FDA-Public Use
  Company Number: US-BAXTER-2011BH030881

PATIENT
  Age: 52 Year
  Sex: Female

DRUGS (1)
  1. DIANEAL [Suspect]
     Indication: PERITONEAL DIALYSIS
     Route: 033
     Dates: end: 20110101

REACTIONS (5)
  - DEHYDRATION [None]
  - PULMONARY THROMBOSIS [None]
  - BLOOD ALBUMIN DECREASED [None]
  - HYPOTENSION [None]
  - MALNUTRITION [None]
